FAERS Safety Report 17766243 (Version 3)
Quarter: 2020Q2

REPORT INFORMATION
  Report Type: Spontaneous
  Country: JP (occurrence: JP)
  Receive Date: 20200511
  Receipt Date: 20200623
  Transmission Date: 20200714
  Serious: Yes (Hospitalization, Other)
  Sender: FDA-Public Use
  Company Number: JP-BRISTOL-MYERS SQUIBB COMPANY-BMS-2020-037227

PATIENT
  Age: 44 Year
  Sex: Female
  Weight: 51.1 kg

DRUGS (1)
  1. OPDIVO [Suspect]
     Active Substance: NIVOLUMAB
     Indication: GASTRIC CANCER
     Dosage: 240 MG
     Route: 041
     Dates: start: 20200428

REACTIONS (1)
  - Ileus [Not Recovered/Not Resolved]

NARRATIVE: CASE EVENT DATE: 20200501
